FAERS Safety Report 24061806 (Version 1)
Quarter: 2024Q3

REPORT INFORMATION
  Report Type: Spontaneous
  Country: FR (occurrence: FR)
  Receive Date: 20240708
  Receipt Date: 20240708
  Transmission Date: 20241016
  Serious: Yes (Other)
  Sender: MYLAN
  Company Number: None

PATIENT
  Age: 23 Year
  Sex: Male

DRUGS (10)
  1. OLANZAPINE [Suspect]
     Active Substance: OLANZAPINE
     Indication: Behaviour disorder
     Dosage: 10 MILLIGRAM, 10 MG ON 01/06 THEN 20 MG FROM 03/06 ONWARDS
     Route: 048
     Dates: start: 20240601
  2. OLANZAPINE [Suspect]
     Active Substance: OLANZAPINE
     Dosage: 20 MILLIGRAM, 10 MG ON 01/06 THEN 20 MG FROM 03/06 ONWARDS
     Route: 048
     Dates: start: 20240603, end: 20240609
  3. TERALITHE [Suspect]
     Active Substance: LITHIUM CARBONATE
     Indication: Bipolar disorder
     Dosage: 2 DOSAGE FORM, QD, 400 MG X 2
     Route: 048
     Dates: start: 20240605, end: 20240610
  4. HALOPERIDOL [Suspect]
     Active Substance: HALOPERIDOL
     Indication: Behaviour disorder
     Dosage: 10 MILLIGRAM, 10 MG ON 04/06, 15 MG ON 06/06, 20 MG ON 08/06
     Route: 048
     Dates: start: 20240604
  5. HALOPERIDOL [Suspect]
     Active Substance: HALOPERIDOL
     Dosage: 15 MILLIGRAM, 10 MG ON 04/06, 15 MG ON 06/06, 20 MG ON 08/06
     Route: 048
     Dates: start: 20240606
  6. HALOPERIDOL [Suspect]
     Active Substance: HALOPERIDOL
     Dosage: 20 MILLIGRAM, 10 MG ON 04/06, 15 MG ON 06/06, 20 MG ON 08/06
     Route: 048
     Dates: start: 20240608, end: 20240609
  7. LOXAPINE [Suspect]
     Active Substance: LOXAPINE
     Indication: Behaviour disorder
     Dosage: 75 MILLIGRAM, QD, 75 MG PER DAY
     Route: 048
     Dates: start: 20240601, end: 20240608
  8. CYAMEMAZINE [Concomitant]
     Active Substance: CYAMEMAZINE
     Indication: Product used for unknown indication
     Dosage: UNK
     Route: 048
     Dates: start: 20240607, end: 20240607
  9. DIAZEPAM [Concomitant]
     Active Substance: DIAZEPAM
     Dosage: UNK
     Route: 048
     Dates: start: 20240601, end: 20240604
  10. LORAZEPAM [Concomitant]
     Active Substance: LORAZEPAM
     Indication: Behaviour disorder
     Dosage: UNK
     Route: 048
     Dates: start: 20240605

REACTIONS (4)
  - Neuroleptic malignant syndrome [Recovering/Resolving]
  - C-reactive protein increased [Recovering/Resolving]
  - Blood creatine phosphokinase increased [Recovering/Resolving]
  - Product administration error [Unknown]

NARRATIVE: CASE EVENT DATE: 20240610
